FAERS Safety Report 4304178-X (Version None)
Quarter: 2004Q1

REPORT INFORMATION
  Report Type: 
  Country: None (occurrence: None)
  Receive Date: 20040223
  Receipt Date: 20040218
  Transmission Date: 20041129
  Serious: Yes (Other)
  Sender: FDA-Public Use
  Company Number: GBWYE593319FEB04

PATIENT

DRUGS (1)
  1. EFFEXOR XR [Suspect]
     Dosage: 150MG FREQUENCY UNSPECIFIED

REACTIONS (1)
  - QUADRIPLEGIA [None]
